FAERS Safety Report 24260515 (Version 1)
Quarter: 2024Q3

REPORT INFORMATION
  Report Type: Report from Study
  Country: ES (occurrence: ES)
  Receive Date: 20240828
  Receipt Date: 20240828
  Transmission Date: 20241017
  Serious: Yes (Hospitalization)
  Sender: PFIZER
  Company Number: ES-TAKEDA-2021TUS077922

PATIENT
  Age: 31 Year
  Sex: Female
  Weight: 87 kg

DRUGS (9)
  1. BRENTUXIMAB VEDOTIN [Suspect]
     Active Substance: BRENTUXIMAB VEDOTIN
     Indication: Hodgkin^s disease nodular sclerosis
     Dosage: 162 MILLIGRAM, Q3WEEKS
     Route: 042
     Dates: start: 20211122
  2. CYTARABINE [Suspect]
     Active Substance: CYTARABINE
     Indication: Hodgkin^s disease nodular sclerosis
     Dosage: 4000 MILLIGRAM, ON DAY 5, EACH 21 DAYS.
     Route: 042
     Dates: start: 20211126
  3. CISPLATIN [Suspect]
     Active Substance: CISPLATIN
     Indication: Hodgkin^s disease nodular sclerosis
     Dosage: 50 MILLIGRAM, DAYS 1 TO 4 EVERY 21 DAYS
     Route: 042
     Dates: start: 20211122
  4. SOLU-MEDROL [Suspect]
     Active Substance: METHYLPREDNISOLONE SODIUM SUCCINATE
     Indication: Hodgkin^s disease nodular sclerosis
     Dosage: 250 MILLIGRAM, ON DAYS 1 TO 4 EVERY 21 DAYS
     Route: 042
     Dates: start: 20211122
  5. ETOPOSIDE [Suspect]
     Active Substance: ETOPOSIDE
     Indication: Hodgkin^s disease nodular sclerosis
     Dosage: 80 MILLIGRAM, ON DAYS 1 TO 4 EVERY 21 DAYS
     Route: 042
     Dates: start: 20211122
  6. DEXKETOPROFEN [Concomitant]
     Active Substance: DEXKETOPROFEN
     Indication: Pain prophylaxis
     Dosage: 25 MILLIGRAM
     Route: 048
  7. HEPARIN [Concomitant]
     Active Substance: HEPARIN SODIUM
     Indication: Thrombosis prophylaxis
     Dosage: UNK, QD
     Route: 058
     Dates: end: 20211205
  8. ONDANSETRON [Concomitant]
     Active Substance: ONDANSETRON
     Indication: Prophylaxis of nausea and vomiting
     Dosage: 8 MILLIGRAM
     Route: 042
     Dates: end: 20211207
  9. ENOXAPARIN SODIUM [Concomitant]
     Active Substance: ENOXAPARIN SODIUM
     Indication: Thrombosis prophylaxis
     Dosage: UNK UNK, QD
     Route: 058
     Dates: start: 20211127, end: 20211202

REACTIONS (1)
  - Febrile neutropenia [Recovered/Resolved]

NARRATIVE: CASE EVENT DATE: 20211203
